FAERS Safety Report 16660130 (Version 1)
Quarter: 2019Q3

REPORT INFORMATION
  Report Type: Report from Study
  Country: CA (occurrence: CA)
  Receive Date: 20190802
  Receipt Date: 20190802
  Transmission Date: 20191004
  Serious: Yes (Other)
  Sender: FDA-Public Use
  Company Number: CA-ORION CORPORATION ORION PHARMA-TREX2019-2550

PATIENT
  Age: 35 Year
  Sex: Male
  Weight: 81.63 kg

DRUGS (2)
  1. SIMPONI [Suspect]
     Active Substance: GOLIMUMAB
     Indication: ANKYLOSING SPONDYLITIS
     Route: 058
  2. METHOTREXATE (TRADE NAME UNKNOWN) [Suspect]
     Active Substance: METHOTREXATE
     Indication: PSORIASIS
     Route: 065

REACTIONS (6)
  - Gingivitis [Unknown]
  - Psoriasis [Unknown]
  - Weight decreased [Unknown]
  - Depression [Unknown]
  - Ear infection [Unknown]
  - Sinusitis [Unknown]
